FAERS Safety Report 10772047 (Version 1)
Quarter: 2015Q1

REPORT INFORMATION
  Report Type: Spontaneous
  Country: US (occurrence: US)
  Receive Date: 20150206
  Receipt Date: 20150206
  Transmission Date: 20150721
  Serious: Yes (Other)
  Sender: FDA-Public Use
  Company Number: US-ASTRAZENECA-2015SE10973

PATIENT
  Sex: Female
  Weight: 104.3 kg

DRUGS (3)
  1. SYMLIN [Suspect]
     Active Substance: PRAMLINTIDE ACETATE
     Indication: TYPE 2 DIABETES MELLITUS
     Dosage: 1.5 ML, 60 MCG
     Route: 058
  2. CENTROID [Concomitant]
     Route: 048
  3. INSULIN [Concomitant]
     Active Substance: INSULIN NOS
     Indication: TYPE 2 DIABETES MELLITUS
     Dosage: 30 UNITS MORNING, 10 UNITS AFTERNOON, 30 UNITS IN THE EVENING

REACTIONS (2)
  - Blood glucose increased [Unknown]
  - Thyroid cancer [Unknown]
